FAERS Safety Report 4493371-1 (Version None)
Quarter: 2004Q4

REPORT INFORMATION
  Report Type: 
  Country: None (occurrence: None)
  Receive Date: 20041102
  Receipt Date: 20041019
  Transmission Date: 20050328
  Serious: Yes (Hospitalization)
  Sender: FDA-Public Use
  Company Number: 2004-BP-10219BP

PATIENT
  Age: 62 Year
  Sex: Male

DRUGS (6)
  1. MICARDIS [Suspect]
     Indication: HYPERTENSION
     Dosage: SEE IMAGE
     Route: 048
     Dates: start: 19990501, end: 20030201
  2. MICARDIS [Suspect]
     Indication: HYPERTENSION
     Dosage: SEE IMAGE
     Route: 048
     Dates: start: 20030201
  3. TENORMIN [Suspect]
     Indication: HYPERTENSION
     Dosage: 50 MG, PO
     Route: 048
     Dates: start: 20030101
  4. PRAVACHOL [Suspect]
     Indication: BLOOD CHOLESTEROL INCREASED
     Dosage: 40 MG, PO
     Route: 048
     Dates: start: 19990101
  5. PROPRANOLOL [Concomitant]
  6. IMDUR [Concomitant]

REACTIONS (12)
  - AGGRESSION [None]
  - AGITATION [None]
  - AMNESIA [None]
  - ANGIOPLASTY [None]
  - CONDITION AGGRAVATED [None]
  - GAMBLING [None]
  - HYPOTENSION [None]
  - OBSESSIVE-COMPULSIVE DISORDER [None]
  - PHARMACEUTICAL PRODUCT COMPLAINT [None]
  - SEDATION [None]
  - SYNCOPE [None]
  - THINKING ABNORMAL [None]
